FAERS Safety Report 8925709 (Version 1)
Quarter: 2012Q4

REPORT INFORMATION
  Report Type: 
  Country: CA (occurrence: CA)
  Receive Date: 20121126
  Receipt Date: 20121126
  Transmission Date: 20130627
  Serious: No
  Sender: FDA-Public Use
  Company Number: CA-B.I. PHARMACEUTICALS,INC./RIDGEFIELD-2012-CN-02288CN

PATIENT
  Sex: Male

DRUGS (1)
  1. TRAJENTA [Suspect]

REACTIONS (1)
  - Urticaria [Unknown]
